FAERS Safety Report 24055619 (Version 1)
Quarter: 2024Q3

REPORT INFORMATION
  Report Type: Spontaneous
  Country: US (occurrence: US)
  Receive Date: 20240705
  Receipt Date: 20240705
  Transmission Date: 20241017
  Serious: No
  Sender: SANOFI AVENTIS
  Company Number: US-SA-SAC20240701000115

PATIENT
  Age: 61 Year
  Sex: Male

DRUGS (4)
  1. DUPIXENT [Suspect]
     Active Substance: DUPILUMAB
     Indication: Dermatitis atopic
     Dosage: 300 MG, QOW
     Route: 058
     Dates: start: 20220723
  2. VUMERITY [Suspect]
     Active Substance: DIROXIMEL FUMARATE
  3. AMPYRA [Concomitant]
     Active Substance: DALFAMPRIDINE
  4. REBIF [Concomitant]
     Active Substance: INTERFERON BETA-1A

REACTIONS (4)
  - Muscular weakness [Not Recovered/Not Resolved]
  - Fall [Not Recovered/Not Resolved]
  - Skin warm [Unknown]
  - Rash [Not Recovered/Not Resolved]
